FAERS Safety Report 9922656 (Version 2)
Quarter: 2014Q2

REPORT INFORMATION
  Report Type: Report from Study
  Country: CA (occurrence: CA)
  Receive Date: 20140225
  Receipt Date: 20140409
  Transmission Date: 20141212
  Serious: Yes (Hospitalization, Other)
  Sender: FDA-Public Use
  Company Number: CA-TEVA-464131USA

PATIENT
  Age: 55 Year
  Sex: Female

DRUGS (5)
  1. COPAXONE [Suspect]
     Indication: MULTIPLE SCLEROSIS
     Dates: start: 20070402, end: 201401
  2. MINERALS NOS [Concomitant]
  3. AMITRIPTYLINE [Concomitant]
  4. PANTOLOC [Concomitant]
  5. MULTIVITAMIN [Concomitant]

REACTIONS (3)
  - Swollen tongue [Recovered/Resolved]
  - Suicidal ideation [Recovered/Resolved]
  - Endotracheal intubation [Recovered/Resolved]
